FAERS Safety Report 12699579 (Version 1)
Quarter: 2016Q3

REPORT INFORMATION
  Report Type: Spontaneous
  Country: US (occurrence: US)
  Receive Date: 20160830
  Receipt Date: 20160830
  Transmission Date: 20161109
  Serious: Yes (Other)
  Sender: FDA-Public Use
  Company Number: US-TARO-2016TAR00714

PATIENT
  Sex: Male
  Weight: 90.7 kg

DRUGS (8)
  1. PHENYTOIN SODIUM EXTENDED [Suspect]
     Active Substance: PHENYTOIN SODIUM
     Indication: COMPLEX PARTIAL SEIZURES
     Dosage: UNK DOSE
     Dates: start: 201208
  2. ARICEPT [Concomitant]
     Active Substance: DONEPEZIL HYDROCHLORIDE
  3. VITAMIN D [Concomitant]
     Active Substance: CHOLECALCIFEROL
  4. CALCIUM [Concomitant]
     Active Substance: CALCIUM
  5. PHENYTOIN SODIUM EXTENDED [Suspect]
     Active Substance: PHENYTOIN SODIUM
     Dosage: 3 CAPSULES, EVERY 48 HOURS
     Route: 048
  6. ASPIRIN. [Concomitant]
     Active Substance: ASPIRIN
  7. PHENYTOIN SODIUM EXTENDED [Suspect]
     Active Substance: PHENYTOIN SODIUM
     Dosage: 4 CAPSULES, EVERY 48 HOURS
     Route: 048
  8. VITAMIN B12 [Concomitant]
     Active Substance: CYANOCOBALAMIN
     Dosage: 0.5 TABLETS, EVERY 72 HOURS

REACTIONS (13)
  - Drug ineffective [Not Recovered/Not Resolved]
  - Anger [Unknown]
  - Confusional state [Recovered/Resolved]
  - Fatigue [Unknown]
  - Diabetes mellitus [Unknown]
  - Vitamin B12 deficiency [Unknown]
  - Wrong technique in product usage process [Not Recovered/Not Resolved]
  - Peripheral coldness [Unknown]
  - Patient uncooperative [Unknown]
  - Haematoma [Unknown]
  - Hyperhidrosis [Unknown]
  - Complex partial seizures [Not Recovered/Not Resolved]
  - Thyroid function test abnormal [Recovered/Resolved]

NARRATIVE: CASE EVENT DATE: 2012
